FAERS Safety Report 10523453 (Version 1)
Quarter: 2014Q4

REPORT INFORMATION
  Report Type: Spontaneous
  Country: US (occurrence: US)
  Receive Date: 20141017
  Receipt Date: 20141017
  Transmission Date: 20150528
  Serious: No
  Sender: FDA-Public Use
  Company Number: US-009507513-1410USA008553

PATIENT
  Sex: Female

DRUGS (1)
  1. IMPLANON [Suspect]
     Active Substance: ETONOGESTREL
     Dosage: ^1 ROD/ 3 YEARS^
     Route: 059
     Dates: start: 201110

REACTIONS (2)
  - Device breakage [Unknown]
  - No adverse event [Unknown]
